FAERS Safety Report 6466275-2 (Version None)
Quarter: 2009Q4

REPORT INFORMATION
  Report Type: 
  Country: None (occurrence: None)
  Receive Date: 20091202
  Receipt Date: 20091119
  Transmission Date: 20100525
  Serious: Yes (Death, Life-Threatening, Other)
  Sender: FDA-Public Use
  Company Number: CA-ROCHE-644141

PATIENT
  Sex: Male

DRUGS (17)
  1. DIAZEPAM [Suspect]
     Indication: DRUG USE FOR UNKNOWN INDICATION
     Route: 065
  2. PEGASYS [Suspect]
     Indication: HEPATITIS C
     Route: 058
     Dates: start: 20090114, end: 20090709
  3. COPEGUS [Suspect]
     Indication: HEPATITIS C
     Route: 048
     Dates: start: 20090114, end: 20090709
  4. HEROIN [Suspect]
     Indication: DRUG USE FOR UNKNOWN INDICATION
     Route: 065
  5. CODEINE [Suspect]
     Indication: DRUG USE FOR UNKNOWN INDICATION
     Route: 065
  6. OXAZEPAM [Suspect]
     Indication: DRUG USE FOR UNKNOWN INDICATION
     Route: 065
  7. NITRAZEPAM [Suspect]
     Indication: DRUG USE FOR UNKNOWN INDICATION
     Route: 065
  8. TEMAZEPAM [Suspect]
     Indication: DRUG USE FOR UNKNOWN INDICATION
     Route: 065
  9. CITALOPRAM HYDROBROMIDE [Suspect]
     Indication: DRUG USE FOR UNKNOWN INDICATION
     Route: 065
  10. CELEXA [Concomitant]
     Route: 048
     Dates: start: 20090318, end: 20090101
  11. ENSURE PLUS [Concomitant]
     Route: 048
     Dates: start: 20090218, end: 20090101
  12. NEURONTIN [Concomitant]
     Route: 048
     Dates: start: 20090513, end: 20090101
  13. SEROQUEL [Concomitant]
     Dosage: AT NIGHT
     Route: 048
     Dates: start: 20090512, end: 20090101
  14. SEROQUEL [Concomitant]
     Route: 048
     Dates: start: 20090512, end: 20090101
  15. TYLENOL (CAPLET) [Concomitant]
     Dosage: DRUG; TYLENOL 3
     Route: 048
     Dates: start: 20081104
  16. RITALIN [Concomitant]
     Dosage: AT AM
     Route: 048
     Dates: start: 20081104
  17. BUSCOPAN [Concomitant]
     Dosage: AS NECESSARY
     Route: 048
     Dates: start: 20081104

REACTIONS (8)
  - ANXIETY [None]
  - ARTERIOSCLEROSIS CORONARY ARTERY [None]
  - COMPLETED SUICIDE [None]
  - DEPRESSED LEVEL OF CONSCIOUSNESS [None]
  - DEPRESSION [None]
  - DRUG ABUSE [None]
  - OVERDOSE [None]
  - UNRESPONSIVE TO STIMULI [None]
